FAERS Safety Report 5527628-X (Version None)
Quarter: 2007Q4

REPORT INFORMATION
  Report Type: 
  Country: None (occurrence: None)
  Receive Date: 20071121
  Receipt Date: 20071105
  Transmission Date: 20080405
  Serious: Yes (Hospitalization)
  Sender: FDA-Public Use
  Company Number: 013261

PATIENT
  Age: 43 Year
  Sex: Male

DRUGS (7)
  1. PRIALT [Suspect]
     Indication: BACK PAIN
     Dosage: 0.125 UG, ONCE/HOUR, INTRATHECAL ; 0.15 UG, ONCE/HOUR, INTRATHECAL
     Route: 037
     Dates: start: 20070820, end: 20070920
  2. PRIALT [Suspect]
     Indication: POST LAMINECTOMY SYNDROME
     Dosage: 0.125 UG, ONCE/HOUR, INTRATHECAL ; 0.15 UG, ONCE/HOUR, INTRATHECAL
     Route: 037
     Dates: start: 20070820, end: 20070920
  3. PRIALT [Suspect]
     Indication: BACK PAIN
     Dosage: 0.125 UG, ONCE/HOUR, INTRATHECAL ; 0.15 UG, ONCE/HOUR, INTRATHECAL
     Route: 037
     Dates: start: 20070921, end: 20070927
  4. PRIALT [Suspect]
     Indication: POST LAMINECTOMY SYNDROME
     Dosage: 0.125 UG, ONCE/HOUR, INTRATHECAL ; 0.15 UG, ONCE/HOUR, INTRATHECAL
     Route: 037
     Dates: start: 20070921, end: 20070927
  5. NEURONTIN [Concomitant]
  6. KATADOLON /00890102/(FLUPIRTINE MALEATE) [Concomitant]
  7. CAPROS (MORPHINE SULFATE) [Concomitant]

REACTIONS (3)
  - ALLODYNIA [None]
  - DYSAESTHESIA [None]
  - PARAESTHESIA [None]
